FAERS Safety Report 8558453-3 (Version None)
Quarter: 2012Q3

REPORT INFORMATION
  Report Type: 
  Country: None (occurrence: None)
  Receive Date: 20120801
  Receipt Date: 20120723
  Transmission Date: 20120928
  Serious: Yes (Congenital Anomaly)
  Sender: FDA-Public Use
  Company Number: DE-TEVA-350125GER

PATIENT
  Sex: Male

DRUGS (2)
  1. MITOXANTRONE [Suspect]
  2. ONDANSETRON [Concomitant]

REACTIONS (1)
  - PIERRE ROBIN SYNDROME [None]
